FAERS Safety Report 9678119 (Version 2)
Quarter: 2014Q1

REPORT INFORMATION
  Report Type: Spontaneous
  Country: GB (occurrence: None)
  Receive Date: 20131106
  Receipt Date: 20140127
  Transmission Date: 20141002
  Serious: Yes (Other)
  Sender: FDA-Public Use
  Company Number: 2013AP009386

PATIENT
  Age: 36 Year
  Sex: Male

DRUGS (8)
  1. AMISULPRIDE [Suspect]
     Dates: start: 2011, end: 2011
  2. PAROXETINE [Suspect]
  3. SERTRALINE [Suspect]
     Dates: end: 2011
  4. ZOPICLONE [Suspect]
     Dates: end: 2011
  5. CHLORPROMAZINE [Suspect]
     Dates: end: 2011
  6. LITHIUM [Suspect]
     Dates: start: 199801, end: 2011
  7. QUETIAPINE FUMARATE [Suspect]
     Indication: PSYCHOTIC DISORDER
     Route: 048
     Dates: start: 2011
  8. VENLAFAXINE [Suspect]
     Dates: start: 1997, end: 2011

REACTIONS (15)
  - Convulsion [None]
  - Drug ineffective [None]
  - Drug effect decreased [None]
  - Feeling abnormal [None]
  - Hypomania [None]
  - Oromandibular dystonia [None]
  - Insomnia [None]
  - Suspected counterfeit product [None]
  - Weight decreased [None]
  - Mania [None]
  - Tourette^s disorder [None]
  - Blood prolactin increased [None]
  - Blood oestrogen increased [None]
  - Mental disorder [None]
  - Product counterfeit [None]
